FAERS Safety Report 18457805 (Version 2)
Quarter: 2021Q2

REPORT INFORMATION
  Report Type: Spontaneous
  Country: LV (occurrence: LV)
  Receive Date: 20201103
  Receipt Date: 20210628
  Transmission Date: 20210717
  Serious: Yes (Hospitalization, Other)
  Sender: FDA-Public Use
  Company Number: LV-ABBVIE-20K-287-3628016-00

PATIENT
  Age: 32 Year
  Sex: Male

DRUGS (7)
  1. ABACAVIR SULFATE;DOLUTEGRAVIR;LAMIVUDINE [Suspect]
     Active Substance: ABACAVIR SULFATE\DOLUTEGRAVIR SODIUM\LAMIVUDINE
     Indication: HIV INFECTION
     Route: 065
     Dates: start: 2015
  2. ABACAVIR SULFATE + LAMIVUDINE [Suspect]
     Active Substance: ABACAVIR SULFATE\LAMIVUDINE
     Indication: HIV INFECTION
     Route: 065
     Dates: start: 2015, end: 2018
  3. MAVIRET [Suspect]
     Active Substance: GLECAPREVIR\PIBRENTASVIR
     Indication: HEPATITIS C
     Route: 048
     Dates: start: 202009, end: 202011
  4. ATAZANAVIR + RITONAVIR [Suspect]
     Active Substance: ATAZANAVIR\RITONAVIR
     Indication: HIV INFECTION
     Route: 065
  5. DOLUTEGRAVIR;RILPIVIRINE [Suspect]
     Active Substance: DOLUTEGRAVIR SODIUM\RILPIVIRINE HYDROCHLORIDE
     Indication: HIV INFECTION
     Route: 065
     Dates: start: 202102
  6. RALTEGRAVIR. [Suspect]
     Active Substance: RALTEGRAVIR
     Indication: HIV INFECTION
     Route: 065
  7. ABACAVIR SULFATE;DOLUTEGRAVIR;LAMIVUDINE [Suspect]
     Active Substance: ABACAVIR SULFATE\DOLUTEGRAVIR SODIUM\LAMIVUDINE
     Route: 065
     Dates: start: 2018, end: 2019

REACTIONS (11)
  - Pancytopenia [Unknown]
  - Splenomegaly [Unknown]
  - Hypercoagulation [Unknown]
  - Ascites [Unknown]
  - Hepatic cirrhosis [Unknown]
  - Glomerular filtration rate decreased [Unknown]
  - Hypersplenism [Unknown]
  - Treatment noncompliance [Unknown]
  - Hepatocellular injury [Unknown]
  - Portal hypertension [Unknown]
  - Hospitalisation [Unknown]

NARRATIVE: CASE EVENT DATE: 202105
